FAERS Safety Report 13743272 (Version 2)
Quarter: 2017Q3

REPORT INFORMATION
  Report Type: Spontaneous
  Country: US (occurrence: US)
  Receive Date: 20170711
  Receipt Date: 20170818
  Transmission Date: 20171127
  Serious: Yes (Other)
  Sender: FDA-Public Use
  Company Number: US-BAYER-2017-131862

PATIENT
  Age: 24 Year
  Sex: Male

DRUGS (4)
  1. KOGENATE FS [Suspect]
     Active Substance: ANTIHEMOPHILIC FACTOR, HUMAN RECOMBINANT
     Indication: FACTOR VIII DEFICIENCY
     Dosage: 4250 IU, BIW
     Route: 042
     Dates: start: 20130913
  2. KOGENATE FS [Suspect]
     Active Substance: ANTIHEMOPHILIC FACTOR, HUMAN RECOMBINANT
     Indication: FACTOR VIII DEFICIENCY
     Dosage: 3850 IU, PRN
     Route: 042
     Dates: start: 20170720
  3. KOGENATE FS [Suspect]
     Active Substance: ANTIHEMOPHILIC FACTOR, HUMAN RECOMBINANT
     Indication: FACTOR VIII DEFICIENCY
     Dosage: 4250 IU, BIW
     Route: 042
     Dates: start: 20170720
  4. KOGENATE FS [Suspect]
     Active Substance: ANTIHEMOPHILIC FACTOR, HUMAN RECOMBINANT
     Indication: FACTOR VIII DEFICIENCY
     Dosage: UNK (RECEIVED 3 DOSES TO TREAT R-FOOT BLEED)
     Route: 042
     Dates: start: 201708, end: 201708

REACTIONS (3)
  - Contusion [None]
  - Haemorrhage [None]
  - Treatment noncompliance [None]

NARRATIVE: CASE EVENT DATE: 20170809
